FAERS Safety Report 20905009 (Version 1)
Quarter: 2022Q2

REPORT INFORMATION
  Report Type: Spontaneous
  Country: US (occurrence: None)
  Receive Date: 20220601
  Receipt Date: 20220601
  Transmission Date: 20220721
  Serious: Yes (Other)
  Sender: FDA-Public Use
  Company Number: None

PATIENT
  Age: 49 Year
  Sex: Female

DRUGS (1)
  1. BENLYSTA [Suspect]
     Active Substance: BELIMUMAB
     Indication: Product used for unknown indication
     Route: 058
     Dates: start: 202011

REACTIONS (3)
  - Complex regional pain syndrome [None]
  - Arthralgia [None]
  - Infection [None]

NARRATIVE: CASE EVENT DATE: 20220601
